FAERS Safety Report 6226696-X (Version None)
Quarter: 2009Q2

REPORT INFORMATION
  Report Type: 
  Country: None (occurrence: None)
  Receive Date: 20090612
  Receipt Date: 20090605
  Transmission Date: 20091009
  Serious: Yes (Other)
  Sender: FDA-Public Use
  Company Number: US-JNJFOC-20090602948

PATIENT
  Sex: Female
  Weight: 83.92 kg

DRUGS (12)
  1. DURAGESIC-100 [Suspect]
     Indication: INTERVERTEBRAL DISC DEGENERATION
     Route: 062
  2. VICODIN [Concomitant]
     Indication: BACK PAIN
     Route: 048
  3. VALIUM [Concomitant]
     Indication: BACK PAIN
     Route: 048
  4. NAPROSYN [Concomitant]
     Indication: BACK PAIN
     Route: 048
  5. LEVONORGESTREL [Concomitant]
     Indication: CONTRACEPTION
     Route: 048
  6. SINGULAIR [Concomitant]
     Indication: ASTHMA
     Route: 048
  7. ZYRTEC [Concomitant]
     Indication: ASTHMA
     Route: 048
  8. NASACORT [Concomitant]
     Indication: ASTHMA
     Dosage: I SPRAY PER NOSTRIL
     Route: 045
  9. ALBUTEROL [Concomitant]
     Indication: ASTHMA
     Dosage: 3 PUFFS
     Route: 048
  10. ADVAIR HFA [Concomitant]
     Indication: ASTHMA
     Route: 048
  11. PREDNISONE [Concomitant]
     Indication: ASTHMA
     Route: 048
  12. ELAVIL [Concomitant]
     Indication: SLEEP APNOEA SYNDROME
     Dosage: AT BEDTIME
     Route: 048

REACTIONS (8)
  - APPLICATION SITE IRRITATION [None]
  - APPLICATION SITE PRURITUS [None]
  - DRUG INEFFECTIVE [None]
  - HYPERTENSION [None]
  - INCORRECT DRUG ADMINISTRATION DURATION [None]
  - NAUSEA [None]
  - ONYCHOMYCOSIS [None]
  - WRONG TECHNIQUE IN DRUG USAGE PROCESS [None]
